FAERS Safety Report 8985374 (Version 1)
Quarter: 2012Q4

REPORT INFORMATION
  Report Type: 
  Country: US (occurrence: US)
  Receive Date: 20121226
  Receipt Date: 20121226
  Transmission Date: 20130627
  Serious: Yes (Other)
  Sender: FDA-Public Use
  Company Number: US-PFIZER INC-2012326536

PATIENT
  Age: 59 Year
  Sex: Female

DRUGS (9)
  1. NEURONTIN [Suspect]
     Indication: NEUROPATHY
     Dosage: 400 mg, 2x/day
     Route: 048
  2. ZOLOFT [Suspect]
     Indication: DEPRESSION
     Dosage: 150 mg, 1x/day
     Route: 048
  3. DETROL LA [Suspect]
     Indication: URINARY INCONTINENCE
     Dosage: 4 mg, 1x/day
     Route: 048
  4. DETROL LA [Suspect]
     Dosage: 4 mg, 2x/day
     Route: 048
  5. METFORMIN [Concomitant]
     Dosage: UNK
  6. ATIVAN [Concomitant]
     Dosage: UNK
  7. NEXIUM [Concomitant]
     Dosage: UNK
  8. WELLBUTRIN [Concomitant]
     Dosage: UNK
  9. CRESTOR [Concomitant]
     Dosage: UNK

REACTIONS (16)
  - Deafness [Unknown]
  - Headache [Not Recovered/Not Resolved]
  - Amnesia [Unknown]
  - Vision blurred [Unknown]
  - Tremor [Unknown]
  - Dry skin [Unknown]
  - Dizziness [Unknown]
  - Gait disturbance [Unknown]
  - Overweight [Unknown]
  - Incorrect dose administered [Unknown]
  - Tremor [Unknown]
  - Bone pain [Unknown]
  - Agitation [Unknown]
  - Photophobia [Unknown]
  - Dyskinesia [Unknown]
  - Balance disorder [Unknown]
